FAERS Safety Report 8014692-1 (Version None)
Quarter: 2011Q4

REPORT INFORMATION
  Report Type: 
  Country: None (occurrence: None)
  Receive Date: 20111229
  Receipt Date: 20111118
  Transmission Date: 20120403
  Serious: Yes (Hospitalization, Other)
  Sender: FDA-Public Use
  Company Number: PHHY2011US93891

PATIENT
  Sex: Male
  Weight: 107 kg

DRUGS (1)
  1. MYFORTIC [Suspect]
     Indication: RENAL TRANSPLANT
     Dosage: 1280 MG, UNK
     Route: 048
     Dates: start: 20090807

REACTIONS (3)
  - URINARY TRACT OBSTRUCTION [None]
  - BENIGN PROSTATIC HYPERPLASIA [None]
  - URINARY TRACT INFECTION [None]
